FAERS Safety Report 5824656-1 (Version None)
Quarter: 2008Q3

REPORT INFORMATION
  Report Type: 
  Country: None (occurrence: None)
  Receive Date: 20080721
  Receipt Date: 20080709
  Transmission Date: 20090109
  Serious: Yes (Hospitalization, Other)
  Sender: FDA-Public Use
  Company Number: TCI2008A03507

PATIENT

DRUGS (11)
  1. LANSOPRAZOLE [Suspect]
     Dosage: 15 MG (15 MG, 1 IN 1 D)
     Route: 048
     Dates: start: 20080524, end: 20080608
  2. BEPRICOR (BEPRIDIL) (TABLETS) [Suspect]
     Indication: ATRIAL FIBRILLATION
     Dosage: 150 MG (150 MG, 1 IN 1 D)
     Route: 048
     Dates: start: 20080524, end: 20080608
  3. VASOLAN (VERAPAMIL HYDROCHLORIDE) (TABLETS) [Suspect]
     Dosage: 120 MG (120 MG, 1 IN 1 D)
     Route: 048
     Dates: start: 20080525, end: 20080608
  4. WARFARIN (WARFARIN POTASSIUM) [Concomitant]
  5. ACETYLSALICYLIC ACID SRT [Concomitant]
  6. UNACID [Concomitant]
  7. AMPICILLIN [Concomitant]
  8. FAROM (FAROPENEM SODIUM) [Concomitant]
  9. FLUMARIN (FLOMOXEF SODIUM) [Concomitant]
  10. ATENOLOL [Concomitant]
  11. DIGOXIN [Concomitant]

REACTIONS (6)
  - ATRIAL FIBRILLATION [None]
  - BLOOD PRESSURE DECREASED [None]
  - LIVER DISORDER [None]
  - PYREXIA [None]
  - SHOCK [None]
  - TACHYCARDIA [None]
